FAERS Safety Report 23138699 (Version 1)
Quarter: 2023Q4

REPORT INFORMATION
  Report Type: Spontaneous
  Country: US (occurrence: None)
  Receive Date: 20231101
  Receipt Date: 20231101
  Transmission Date: 20240110
  Serious: No
  Sender: FDA-Public Use
  Company Number: None

PATIENT
  Age: 56 Year
  Sex: Female
  Weight: 74.25 kg

DRUGS (11)
  1. OZEMPIC [Suspect]
     Active Substance: SEMAGLUTIDE
     Indication: Type 2 diabetes mellitus
     Dates: start: 20220912, end: 20230213
  2. BASAGLAR [Concomitant]
     Active Substance: INSULIN GLARGINE
  3. VICTOZA [Concomitant]
     Active Substance: LIRAGLUTIDE
  4. METFORMIN [Concomitant]
     Active Substance: METFORMIN HYDROCHLORIDE
  5. FARXIGA [Concomitant]
     Active Substance: DAPAGLIFLOZIN PROPANEDIOL
  6. LOSARTAN [Concomitant]
     Active Substance: LOSARTAN
  7. ROSUVASTATIN [Concomitant]
     Active Substance: ROSUVASTATIN
  8. FISH OIL [Concomitant]
     Active Substance: FISH OIL
  9. VITAMINS [Concomitant]
     Active Substance: VITAMINS
  10. Ambarren [Concomitant]
  11. COENZYME Q10 [Concomitant]
     Active Substance: DIETARY SUPPLEMENT\UBIDECARENONE

REACTIONS (3)
  - Pain [None]
  - Pain of skin [None]
  - Therapy interrupted [None]

NARRATIVE: CASE EVENT DATE: 20230213
